FAERS Safety Report 24955683 (Version 1)
Quarter: 2025Q1

REPORT INFORMATION
  Report Type: Spontaneous
  Country: GB (occurrence: GB)
  Receive Date: 20250211
  Receipt Date: 20250211
  Transmission Date: 20250408
  Serious: Yes (Other)
  Sender: MYLAN
  Company Number: GB-MHRA-TPP46048122C8887069YC1736156052316

PATIENT
  Age: 79 Year
  Sex: Female
  Weight: 70 kg

DRUGS (7)
  1. FELODIPINE [Suspect]
     Active Substance: FELODIPINE
     Indication: Ill-defined disorder
     Dosage: 10 MILLIGRAM, QD
     Route: 065
  2. CHLORPHENIRAMINE MALEATE [Concomitant]
     Active Substance: CHLORPHENIRAMINE MALEATE
     Indication: Ill-defined disorder
     Dosage: 1 DOSAGE FORM, TID (ONE TO BE TAKEN THREE TIMES A DAY AS REQUIRED  )
     Route: 065
     Dates: start: 20230920
  3. DOXAZOSIN [Concomitant]
     Active Substance: DOXAZOSIN MESYLATE
     Indication: Ill-defined disorder
     Dosage: 2 DOSAGE FORM, QD (~AKE TWO DAILY)
     Route: 065
     Dates: start: 20230920
  4. SOTALOL [Concomitant]
     Active Substance: SOTALOL
     Indication: Ill-defined disorder
     Dosage: 1 DOSAGE FORM, BID (TAKE ONE TWICE DAILY)
     Route: 065
     Dates: start: 20230920
  5. VAGIFEM [Concomitant]
     Active Substance: ESTRADIOL
     Indication: Ill-defined disorder
     Dosage: 1 DOSAGE FORM, BIWEEKLY (ONE TO BE INSERTED INTO THE VAGINAL TWICE A WEEK)
     Route: 067
     Dates: start: 20230920
  6. WARFARIN SODIUM [Concomitant]
     Active Substance: WARFARIN SODIUM
     Indication: Ill-defined disorder
     Route: 065
     Dates: start: 20230920
  7. ATORVASTATIN [Concomitant]
     Active Substance: ATORVASTATIN
     Indication: Ill-defined disorder
     Dosage: 1 DOSAGE FORM, QD (DAILY)
     Route: 065
     Dates: start: 20241120

REACTIONS (1)
  - Joint swelling [Recovering/Resolving]
